FAERS Safety Report 7682906-3 (Version None)
Quarter: 2011Q3

REPORT INFORMATION
  Report Type: 
  Country: None (occurrence: None)
  Receive Date: 20110815
  Receipt Date: 20110805
  Transmission Date: 20111222
  Serious: Yes (Hospitalization)
  Sender: FDA-Public Use
  Company Number: CN-ROCHE-795067

PATIENT
  Age: 44 Year
  Sex: Female
  Weight: 41 kg

DRUGS (7)
  1. PROGRAF [Concomitant]
     Indication: RENAL TRANSPLANT
     Dosage: 1.5MG IN THE MORNING AND 0.5 MG IN THE EVENING
     Route: 048
     Dates: start: 20090321
  2. CHINESE MEDICINE NOS [Concomitant]
     Dosage: 1 DOSE FORM IN THE MORNING, 1 DOSE FORM IN THE EVENING.
     Route: 048
  3. PREDNISONE [Concomitant]
     Indication: RENAL TRANSPLANT
     Dosage: GENERIC NAME WAS REPORTED AS PREDNISONE ACETATE.
     Route: 048
     Dates: start: 20090321
  4. CHINESE MEDICINE NOS [Concomitant]
     Indication: RENAL TRANSPLANT
     Dosage: DRUG NAME REPORTED AS WUZHI SOFT CAPSULE. 1 DOSE FORM IN THE MORNING, 1 DOSE FORM IN THE EVENING.
     Route: 048
     Dates: start: 20090321, end: 20101001
  5. CELLCEPT [Suspect]
     Indication: RENAL TRANSPLANT
     Route: 048
     Dates: start: 20090321, end: 20101001
  6. CELLCEPT [Suspect]
     Route: 048
     Dates: start: 20110726
  7. BREDININ [Concomitant]
     Indication: RENAL TRANSPLANT
     Dosage: 1 DOSE FORM IN THE MORNING, 0.5 DOSE FORM IN THE EVENING.
     Route: 048
     Dates: start: 20101001, end: 20110726

REACTIONS (4)
  - BLOOD CREATININE INCREASED [None]
  - DIARRHOEA [None]
  - IMMUNOSUPPRESSANT DRUG LEVEL DECREASED [None]
  - IMMUNOSUPPRESSANT DRUG LEVEL INCREASED [None]
